FAERS Safety Report 23695537 (Version 8)
Quarter: 2024Q4

REPORT INFORMATION
  Report Type: Report from Study
  Country: CO (occurrence: CO)
  Receive Date: 20240402
  Receipt Date: 20241007
  Transmission Date: 20250114
  Serious: Yes (Hospitalization, Other)
  Sender: TAKEDA
  Company Number: CO-TAKEDA-2024TUS005289

PATIENT
  Age: 76 Year
  Sex: Male
  Weight: 40 kg

DRUGS (1)
  1. VEDOLIZUMAB [Suspect]
     Active Substance: VEDOLIZUMAB
     Indication: Crohn^s disease
     Dosage: 300 MILLIGRAM
     Route: 042
     Dates: start: 20230918

REACTIONS (13)
  - Cachexia [Unknown]
  - Haematochezia [Unknown]
  - Weight decreased [Unknown]
  - Blood pressure decreased [Unknown]
  - Influenza like illness [Unknown]
  - General physical health deterioration [Unknown]
  - Hypophagia [Unknown]
  - Mobility decreased [Unknown]
  - Dizziness [Unknown]
  - Poor venous access [Unknown]
  - Infusion site extravasation [Unknown]
  - Vascular access site pain [Unknown]
  - Headache [Unknown]

NARRATIVE: CASE EVENT DATE: 20240308
